FAERS Safety Report 4997607-X (Version None)
Quarter: 2006Q1

REPORT INFORMATION
  Report Type: 
  Country: None (occurrence: None)
  Receive Date: 20060315
  Receipt Date: 20060116
  Transmission Date: 20060701
  Serious: Yes (Other)
  Sender: FDA-Public Use
  Company Number: 433036

PATIENT
  Sex: Female

DRUGS (1)
  1. BONIVA [Suspect]
     Dosage: ORAL
     Route: 048
     Dates: start: 20051115

REACTIONS (6)
  - ABDOMINAL DISCOMFORT [None]
  - FLATULENCE [None]
  - FREQUENT BOWEL MOVEMENTS [None]
  - ORAL DISCOMFORT [None]
  - SWELLING FACE [None]
  - SWOLLEN TONGUE [None]
